FAERS Safety Report 4443980-0 (Version None)
Quarter: 2004Q3

REPORT INFORMATION
  Report Type: 
  Country: None (occurrence: None)
  Receive Date: 20040729
  Receipt Date: 20040204
  Transmission Date: 20050211
  Serious: Yes (Hospitalization)
  Sender: FDA-Public Use
  Company Number: US-JNJFOC-20030904905

PATIENT
  Age: 13 Year
  Sex: Male

DRUGS (2)
  1. RISPERDAL [Suspect]
     Indication: MOOD SWINGS
     Dosage: 1 MG, 1 IN 1 DAY, ORAL
     Route: 048
     Dates: start: 20021101, end: 20030201
  2. ADDERALL (OBETROL) [Concomitant]

REACTIONS (3)
  - AGGRESSION [None]
  - DEPRESSION [None]
  - SUICIDAL IDEATION [None]
